FAERS Safety Report 21222076 (Version 1)
Quarter: 2022Q3

REPORT INFORMATION
  Report Type: Spontaneous
  Country: US (occurrence: US)
  Receive Date: 20220817
  Receipt Date: 20220817
  Transmission Date: 20221026
  Serious: No
  Sender: FDA-Public Use
  Company Number: US-NOVARTISTESTPH-NVSC2022US185648

PATIENT
  Age: 35 Year
  Sex: Female

DRUGS (1)
  1. LEQVIO [Suspect]
     Active Substance: INCLISIRAN SODIUM
     Indication: Hypolipidaemia
     Dosage: 284 MG, OTHER
     Route: 058

REACTIONS (1)
  - Drug ineffective [Not Recovered/Not Resolved]
